FAERS Safety Report 7259723-1 (Version None)
Quarter: 2011Q1

REPORT INFORMATION
  Report Type: 
  Country: None (occurrence: None)
  Receive Date: 20110130
  Receipt Date: 20100915
  Transmission Date: 20110831
  Serious: No
  Sender: FDA-Public Use
  Company Number: US-ABBOTT-10P-163-0660721-00

PATIENT
  Sex: Male
  Weight: 104.42 kg

DRUGS (1)
  1. HUMIRA [Suspect]
     Indication: ANKYLOSING SPONDYLITIS
     Dates: start: 20100522

REACTIONS (6)
  - FATIGUE [None]
  - FEELING ABNORMAL [None]
  - RASH PUSTULAR [None]
  - INSOMNIA [None]
  - INJECTION SITE HAEMATOMA [None]
  - VIRAL INFECTION [None]
